FAERS Safety Report 17207293 (Version 1)
Quarter: 2019Q4

REPORT INFORMATION
  Report Type: Spontaneous
  Country: SE (occurrence: SE)
  Receive Date: 20191227
  Receipt Date: 20191227
  Transmission Date: 20200122
  Serious: Yes (Hospitalization)
  Sender: FDA-Public Use
  Company Number: SE-TEVA-2019-SE-1158608

PATIENT
  Sex: Female

DRUGS (4)
  1. PROPAVAN [Suspect]
     Active Substance: PROPIOMAZINE
     Dosage: PROPAVAN 13 PCS
     Route: 048
     Dates: start: 20180417, end: 20180417
  2. FLUOXETINE [Suspect]
     Active Substance: FLUOXETINE HYDROCHLORIDE
     Dosage: 240MG
     Route: 048
     Dates: start: 20180417, end: 20180417
  3. LAMOTRIGINE. [Suspect]
     Active Substance: LAMOTRIGINE
     Dosage: 1200 MG
     Route: 048
     Dates: start: 20180417, end: 20180417
  4. IMOVANE [Suspect]
     Active Substance: ZOPICLONE
     Dosage: 45 MG
     Route: 048
     Dates: start: 20180417, end: 20180417

REACTIONS (2)
  - Intentional self-injury [Unknown]
  - Intentional overdose [Unknown]

NARRATIVE: CASE EVENT DATE: 20180417
